FAERS Safety Report 4851579-7 (Version None)
Quarter: 2005Q4

REPORT INFORMATION
  Report Type: 
  Country: None (occurrence: None)
  Receive Date: 20051212
  Receipt Date: 20051128
  Transmission Date: 20060501
  Serious: Yes (Hospitalization)
  Sender: FDA-Public Use
  Company Number: JP-ROCHE-426891

PATIENT
  Age: 36 Year
  Sex: Female

DRUGS (1)
  1. TAMIFLU [Suspect]
     Indication: INFLUENZA
     Route: 048
     Dates: start: 20050125, end: 20050130

REACTIONS (7)
  - ANURIA [None]
  - ANXIETY [None]
  - DEHYDRATION [None]
  - DIARRHOEA [None]
  - FEELING ABNORMAL [None]
  - PANIC DISORDER [None]
  - RESTLESSNESS [None]
